FAERS Safety Report 5195203-5 (Version None)
Quarter: 2006Q4

REPORT INFORMATION
  Report Type: 
  Country: None (occurrence: None)
  Receive Date: 20061229
  Receipt Date: 20061004
  Transmission Date: 20070319
  Serious: Yes (Other)
  Sender: FDA-Public Use
  Company Number: DE-PFIZER INC-2006125851

PATIENT
  Sex: Female

DRUGS (4)
  1. EXUBERA [Suspect]
     Indication: DIABETES MELLITUS INSULIN-DEPENDENT
     Route: 048
     Dates: start: 20060518, end: 20060810
  2. EXUBERA [Suspect]
  3. LANTUS [Concomitant]
     Route: 058
  4. APROVEL [Concomitant]

REACTIONS (5)
  - ANTI-INSULIN ANTIBODY INCREASED [None]
  - DEVICE MALFUNCTION [None]
  - DRUG INEFFECTIVE [None]
  - HYPERGLYCAEMIA [None]
  - PHARMACEUTICAL PRODUCT COMPLAINT [None]
